FAERS Safety Report 16963810 (Version 1)
Quarter: 2019Q4

REPORT INFORMATION
  Report Type: Spontaneous
  Country: US (occurrence: US)
  Receive Date: 20191026
  Receipt Date: 20191026
  Transmission Date: 20200122
  Serious: No
  Sender: FDA-Public Use
  Company Number: US-009507513-1910USA015058

PATIENT
  Sex: Female

DRUGS (1)
  1. NEXPLANON [Suspect]
     Active Substance: ETONOGESTREL
     Indication: CONTRACEPTION
     Dosage: 1 TIME
     Route: 059
     Dates: start: 20181128, end: 20191010

REACTIONS (1)
  - Vaginal haemorrhage [Unknown]
